FAERS Safety Report 5416827-3 (Version None)
Quarter: 2007Q3

REPORT INFORMATION
  Report Type: 
  Country: None (occurrence: None)
  Receive Date: 20070815
  Receipt Date: 20070815
  Transmission Date: 20080115
  Serious: Yes (Death)
  Sender: FDA-Public Use
  Company Number: None

PATIENT
  Sex: Male

DRUGS (8)
  1. CETUXIMAB [Suspect]
     Indication: PANCREATIC CARCINOMA
     Dosage: 408MG IV
     Route: 042
     Dates: start: 20070712
  2. GEMCITABINE HCL [Suspect]
     Indication: PANCREATIC CARCINOMA
     Dosage: 1630G IV
     Route: 042
     Dates: start: 20070705
  3. OXALIPLATIN [Suspect]
     Indication: PANCREATIC CARCINOMA
     Dosage: 163MG IV
     Route: 042
     Dates: start: 20070706
  4. COUMADIN [Concomitant]
  5. PROTONIX [Concomitant]
  6. COLACE [Concomitant]
  7. PERCOCET [Concomitant]
  8. OXYCODONE HCL [Concomitant]

REACTIONS (1)
  - DISEASE PROGRESSION [None]
